FAERS Safety Report 6200080-7 (Version None)
Quarter: 2009Q2

REPORT INFORMATION
  Report Type: 
  Country: None (occurrence: None)
  Receive Date: 20090522
  Receipt Date: 20070711
  Transmission Date: 20091009
  Serious: No
  Sender: FDA-Public Use
  Company Number: US-ALEXION-A200700025

PATIENT
  Sex: Female

DRUGS (14)
  1. SOLIRIS [Suspect]
     Indication: PAROXYSMAL NOCTURNAL HAEMOGLOBINURIA
     Dosage: 600 MG, SINGLE
     Route: 042
     Dates: start: 20070328, end: 20070328
  2. SOLIRIS [Suspect]
     Dosage: 600 MG, SINGLE
     Route: 042
     Dates: start: 20070404, end: 20070404
  3. SOLIRIS [Suspect]
     Dosage: 600 MG, SINGLE
     Route: 042
     Dates: start: 20070411, end: 20070411
  4. SOLIRIS [Suspect]
     Dosage: 600 MG, SINGLE
     Route: 042
     Dates: start: 20070418, end: 20070418
  5. SOLIRIS [Suspect]
     Dosage: 600 MG, SINGLE
     Route: 042
     Dates: start: 20070425, end: 20070425
  6. SOLIRIS [Suspect]
     Dosage: 900 MG, SINGLE
     Route: 042
     Dates: start: 20070509, end: 20070509
  7. SOLIRIS [Suspect]
     Dosage: 900 MG, SINGLE
     Route: 042
     Dates: start: 20070523, end: 20070523
  8. SOLIRIS [Suspect]
     Dosage: 900 MG, SINGLE
     Route: 042
     Dates: start: 20070606, end: 20070606
  9. SOLIRIS [Suspect]
     Dosage: 900 MG, SINGLE
     Route: 042
     Dates: start: 20070620, end: 20070620
  10. SOLIRIS [Suspect]
     Dosage: 900 MG, SINGLE
     Route: 042
     Dates: start: 20070705, end: 20070705
  11. SOLIRIS [Suspect]
     Dosage: 900 MG, SINGLE
     Route: 042
     Dates: start: 20070719, end: 20070719
  12. DECADRON [Concomitant]
     Indication: PREMEDICATION
     Dosage: 10 MG, SINGLE
     Route: 042
     Dates: start: 20070404, end: 20070705
  13. ATIVAN [Concomitant]
     Indication: PREMEDICATION
     Dosage: .5 MG, SINGLE
     Route: 042
     Dates: start: 20070404
  14. KYTRIL                             /01178101/ [Concomitant]
     Indication: PREMEDICATION
     Dosage: 1 MG, SINGLE
     Route: 042
     Dates: start: 20070404, end: 20070705

REACTIONS (4)
  - BACK PAIN [None]
  - MIGRAINE [None]
  - MUSCLE SPASMS [None]
  - NAUSEA [None]
